FAERS Safety Report 9531490 (Version 1)
Quarter: 2013Q2

REPORT INFORMATION
  Report Type: Spontaneous
  Country: US (occurrence: None)
  Receive Date: 20130426
  Receipt Date: 20130426
  Transmission Date: 20140414
  Serious: Yes (Death)
  Sender: FDA-Public Use
  Company Number: 2013-00587

PATIENT
  Age: 51 Year
  Sex: Female

DRUGS (5)
  1. QUETIAPINE [Suspect]
  2. TRAMADOL [Suspect]
  3. MORPHINE [Suspect]
  4. ETODOLAC [Suspect]
  5. LIPOZENE [Suspect]

REACTIONS (1)
  - Completed suicide [None]
